FAERS Safety Report 8318698-4 (Version None)
Quarter: 2012Q2

REPORT INFORMATION
  Report Type: 
  Country: None (occurrence: None)
  Receive Date: 20120427
  Receipt Date: 20120425
  Transmission Date: 20120825
  Serious: Yes (Death, Life-Threatening, Hospitalization)
  Sender: FDA-Public Use
  Company Number: US-GILEAD-2012-0053708

PATIENT
  Sex: Male

DRUGS (17)
  1. AMIODARONE HCL [Concomitant]
  2. PRILOSEC [Concomitant]
  3. SPIRIVA [Concomitant]
  4. XARELTO [Concomitant]
  5. ASPIRIN [Concomitant]
  6. SYNTHROID [Concomitant]
  7. FORADIL [Concomitant]
  8. COREG [Concomitant]
  9. POTASSIUM CHLORIDE [Concomitant]
  10. LETAIRIS [Suspect]
     Indication: INTERSTITIAL LUNG DISEASE
  11. CARDIZEM [Concomitant]
  12. LASIX [Concomitant]
  13. ALBUTEROL [Concomitant]
  14. ZOCOR [Concomitant]
  15. NORVASC [Concomitant]
  16. LETAIRIS [Suspect]
     Indication: PULMONARY HYPERTENSION
     Dosage: 5 MG, UNK
     Route: 048
     Dates: start: 20120323, end: 20120404
  17. MULTI-VITAMINS [Suspect]

REACTIONS (4)
  - CARDIAC FAILURE CONGESTIVE [None]
  - HAEMOPTYSIS [None]
  - DYSPNOEA [None]
  - INTERSTITIAL LUNG DISEASE [None]
